FAERS Safety Report 9122753 (Version 2)
Quarter: 2013Q1

REPORT INFORMATION
  Report Type: Spontaneous
  Country: US (occurrence: US)
  Receive Date: 20130227
  Receipt Date: 20130315
  Transmission Date: 20140127
  Serious: Yes (Other)
  Sender: FDA-Public Use
  Company Number: US-JNJFOC-20130212415

PATIENT
  Age: 45 Year
  Sex: Female
  Weight: 90.72 kg

DRUGS (2)
  1. MOTRIN IB [Suspect]
     Route: 048
  2. MOTRIN IB [Suspect]
     Indication: PAIN IN EXTREMITY
     Route: 048
     Dates: start: 20130215, end: 20130216

REACTIONS (2)
  - Loss of consciousness [Recovered/Resolved]
  - Pain [Recovered/Resolved]
